FAERS Safety Report 4832819-7 (Version None)
Quarter: 2005Q4

REPORT INFORMATION
  Report Type: 
  Country: None (occurrence: None)
  Receive Date: 20051121
  Receipt Date: 20050622
  Transmission Date: 20060501
  Serious: Yes (Life-Threatening)
  Sender: FDA-Public Use
  Company Number: 2005AP03526

PATIENT
  Sex: Male

DRUGS (1)
  1. XYLOCAINE [Suspect]
     Route: 065

REACTIONS (1)
  - BRADYCARDIA [None]
